FAERS Safety Report 13313300 (Version 2)
Quarter: 2017Q2

REPORT INFORMATION
  Report Type: Spontaneous
  Country: US (occurrence: US)
  Receive Date: 20170309
  Receipt Date: 20170412
  Transmission Date: 20170830
  Serious: Yes (Other)
  Sender: FDA-Public Use
  Company Number: US-BAYER-2017-045104

PATIENT
  Age: 45 Year
  Sex: Female
  Weight: 105.22 kg

DRUGS (2)
  1. MIRENA [Suspect]
     Active Substance: LEVONORGESTREL
     Indication: CONTRACEPTION
     Dosage: 20 MCG/24HR, CONT
     Route: 015
     Dates: start: 20170303, end: 20170303
  2. BETADINE [POVIDONE-IODINE] [Concomitant]

REACTIONS (4)
  - Uterine perforation [Recovered/Resolved]
  - Procedural haemorrhage [Recovered/Resolved]
  - Complication of device insertion [None]
  - Pelvic pain [Not Recovered/Not Resolved]

NARRATIVE: CASE EVENT DATE: 20170303
